FAERS Safety Report 4870145-0 (Version None)
Quarter: 2005Q4

REPORT INFORMATION
  Report Type: 
  Country: None (occurrence: None)
  Receive Date: 20051229
  Receipt Date: 20051229
  Transmission Date: 20060501
  Serious: Yes (Hospitalization)
  Sender: FDA-Public Use
  Company Number: None

PATIENT
  Sex: Female
  Weight: 72 kg

DRUGS (13)
  1. RITUXIMAB -683MG [Suspect]
     Indication: MANTLE CELL LYMPHOMA
     Dates: start: 20051213, end: 20051216
  2. BORTEZOMIB -2.7MG [Suspect]
     Indication: MANTLE CELL LYMPHOMA
     Dates: start: 20051213, end: 20051216
  3. CYTOXAN [Suspect]
     Indication: MANTLE CELL LYMPHOMA
     Dates: start: 20051213, end: 20051216
  4. DOXORUBICIN -45.5MG [Suspect]
     Indication: MANTLE CELL LYMPHOMA
     Dates: start: 20051213, end: 20051216
  5. ACYCLOVIR [Concomitant]
  6. ALBUTEROL [Concomitant]
  7. FLUTICASONE [Concomitant]
  8. LEVOTHYROXINE [Concomitant]
  9. LORATADINE [Concomitant]
  10. HEPARIN [Concomitant]
  11. LORAZEPAM [Concomitant]
  12. MOXIFLOXACIN HCL [Concomitant]
  13. GSCF [Concomitant]

REACTIONS (12)
  - CONFUSIONAL STATE [None]
  - DEHYDRATION [None]
  - DYSARTHRIA [None]
  - FALL [None]
  - FEBRILE NEUTROPENIA [None]
  - LUNG INFECTION [None]
  - NEUTROPENIA [None]
  - PALLOR [None]
  - PYREXIA [None]
  - SINUS DISORDER [None]
  - SPUTUM CULTURE POSITIVE [None]
  - URINARY TRACT INFECTION [None]
